FAERS Safety Report 8758787 (Version 1)
Quarter: 2012Q4

REPORT INFORMATION
  Report Type: Spontaneous
  Country: US (occurrence: None)
  Receive Date: 20120828
  Receipt Date: 20120828
  Transmission Date: 20130627
  Serious: Yes (Other)
  Sender: FDA-Public Use
  Company Number: None

PATIENT
  Age: 47 Year
  Sex: Female
  Weight: 68.49 kg

DRUGS (1)
  1. BUPROPRION XL [Suspect]
     Indication: DEPRESSION
     Route: 048
     Dates: start: 20120520, end: 20120822

REACTIONS (3)
  - Product substitution issue [None]
  - Drug ineffective [None]
  - Depression [None]
